FAERS Safety Report 7096091-2 (Version None)
Quarter: 2010Q4

REPORT INFORMATION
  Report Type: 
  Country: None (occurrence: None)
  Receive Date: 20101111
  Receipt Date: 20101102
  Transmission Date: 20110411
  Serious: Yes (Death, Hospitalization)
  Sender: FDA-Public Use
  Company Number: DE-ROCHE-728675

PATIENT
  Sex: Female
  Weight: 92 kg

DRUGS (15)
  1. BEVACIZUMAB [Suspect]
     Dosage: FORM: INFUSION, DATE OF LAST DOSE PRIOR TO SAE: 27 AUG 2010
     Route: 042
     Dates: start: 20100625
  2. TAXOL [Suspect]
     Dosage: FORM: INFUSION, DATE OF LAST DOSE PRIOR TO SAE: 08 SEP 2010
     Route: 042
     Dates: start: 20100625
  3. CAPECITABINE [Suspect]
     Dosage: DAY 1-14, Q3W, DATE OF LAST DOSE PRIOR TO SAE: 09 SEP 2010
     Route: 048
     Dates: start: 20100625
  4. DEXAMETHASONE [Suspect]
     Route: 065
     Dates: end: 20100911
  5. PANTOPRAZOLE SODIUM [Concomitant]
     Dosage: REPORTED AS: PANTOZOL 40 MG
     Dates: start: 20100912, end: 20100915
  6. PREDNISOLON [Concomitant]
     Dosage: REPORTED AS: PREDNISOLON 50 MG
     Dates: start: 20100912, end: 20100915
  7. PREDNISOLON [Concomitant]
     Dosage: REPORTED AS:  PREDNISOLON 25 MG
     Dates: start: 20100913, end: 20100915
  8. NOVALGIN [Concomitant]
     Dosage: REPORTED AS:  NOVALGIN 1 GRAM
     Dates: start: 20100912, end: 20100915
  9. CLONT [Concomitant]
     Dosage: REPORTED AS:  CLONT 1GR
     Dates: start: 20100912, end: 20100915
  10. CEFUROXIME [Concomitant]
     Dosage: REPORTED AS: CEFUROXIM 1.5 GR
     Dates: start: 20100913, end: 20100915
  11. AMINOVEN [Concomitant]
     Dosage: REPORTED AS: AMINOVEN 3.5%
     Dates: start: 20100912, end: 20100913
  12. OLICLINOMEL [Concomitant]
     Dosage: REPORTED AS:  OLICLINOMEL 2.2%
     Dates: start: 20100914, end: 20100915
  13. DELTAJONIN [Concomitant]
     Dosage: REPORTED AS: DELTAJONIN 500 ML
     Dates: start: 20100912, end: 20100912
  14. EMBOLEX [Concomitant]
     Dosage: REPORTED AS: MONOEMBOLEX 3000 I.U
     Dates: start: 20100912, end: 20100915
  15. DELTAJONIN [Concomitant]
     Dates: start: 20100913, end: 20100915

REACTIONS (3)
  - GASTRIC ULCER PERFORATION [None]
  - HAEMATOCRIT DECREASED [None]
  - PANCREATITIS NECROTISING [None]
